FAERS Safety Report 10043261 (Version 7)
Quarter: 2015Q2

REPORT INFORMATION
  Report Type: Report from Study
  Country: FR (occurrence: FR)
  Receive Date: 20140328
  Receipt Date: 20150626
  Transmission Date: 20150821
  Serious: Yes (Other)
  Sender: FDA-Public Use
  Company Number: FR-UCBSA-115728

PATIENT
  Age: 31 Year
  Sex: Female
  Weight: 66 kg

DRUGS (4)
  1. CERTOLIZUMAB PEGOL RA [Suspect]
     Active Substance: CERTOLIZUMAB PEGOL
     Dosage: LOT NO: 105659/107125
     Route: 058
     Dates: start: 20130513
  2. METHOTREXATE [Suspect]
     Active Substance: METHOTREXATE
     Indication: RHEUMATOID ARTHRITIS
     Dosage: 10 MG, WEEKLY (QW)
     Route: 048
     Dates: start: 20131216, end: 20140303
  3. CERTOLIZUMAB PEGOL RA [Suspect]
     Active Substance: CERTOLIZUMAB PEGOL
     Indication: RHEUMATOID ARTHRITIS
     Dosage: 400 MG, EV 2 WEEKS(QOW)
     Route: 058
     Dates: start: 20130314, end: 20130412
  4. LUTENYL [Concomitant]
     Active Substance: NOMEGESTROL ACETATE
     Indication: CONTRACEPTION
     Route: 048
     Dates: start: 201009

REACTIONS (2)
  - Herpes zoster [Recovered/Resolved]
  - Tachycardia [Recovered/Resolved]

NARRATIVE: CASE EVENT DATE: 201401
